FAERS Safety Report 19912391 (Version 1)
Quarter: 2021Q4

REPORT INFORMATION
  Report Type: Report from Study
  Country: CN (occurrence: CN)
  Receive Date: 20211004
  Receipt Date: 20211004
  Transmission Date: 20220303
  Serious: Yes (Hospitalization)
  Sender: FDA-Public Use
  Company Number: 2021A755261

PATIENT
  Age: 72 Year
  Sex: Male
  Weight: 58 kg

DRUGS (3)
  1. SAVOLITINIB [Suspect]
     Active Substance: SAVOLITINIB
     Indication: Non-small cell lung cancer metastatic
     Route: 048
     Dates: start: 20210907, end: 20210922
  2. ACARBOSE [Concomitant]
     Active Substance: ACARBOSE
  3. ONDANSETRON HYDROCHLORIDE [Concomitant]
     Active Substance: ONDANSETRON HYDROCHLORIDE

REACTIONS (1)
  - Liver injury [Not Recovered/Not Resolved]

NARRATIVE: CASE EVENT DATE: 20210923
